FAERS Safety Report 8583038-2 (Version None)
Quarter: 2012Q3

REPORT INFORMATION
  Report Type: 
  Country: None (occurrence: None)
  Receive Date: 20120809
  Receipt Date: 20120806
  Transmission Date: 20120928
  Serious: No
  Sender: FDA-Public Use
  Company Number: US-ASTRAZENECA-2010SE10208

PATIENT
  Sex: Female

DRUGS (3)
  1. SEROQUEL [Suspect]
     Indication: SLEEP DISORDER
     Route: 048
     Dates: start: 20050101
  2. SEROQUEL [Suspect]
     Indication: BIPOLAR DISORDER
     Route: 048
     Dates: start: 20050101
  3. SYMBICORT [Suspect]
     Dosage: TOTAL DAILY DOSE 160/4.5 MCG UNKNOWN FREQUENCY
     Route: 055

REACTIONS (7)
  - ABASIA [None]
  - MALAISE [None]
  - VOMITING [None]
  - ROAD TRAFFIC ACCIDENT [None]
  - APHAGIA [None]
  - DRUG DOSE OMISSION [None]
  - SKELETAL INJURY [None]
